FAERS Safety Report 5910900-9 (Version None)
Quarter: 2008Q4

REPORT INFORMATION
  Report Type: 
  Country: None (occurrence: None)
  Receive Date: 20081007
  Receipt Date: 20080630
  Transmission Date: 20090506
  Serious: No
  Sender: FDA-Public Use
  Company Number: US-ASTRAZENECA-2008UW13150

PATIENT
  Age: 87 Year
  Sex: Female
  Weight: 69.9 kg

DRUGS (6)
  1. ARIMIDEX [Suspect]
     Indication: BREAST CANCER
     Route: 048
     Dates: start: 20080101
  2. ATENOLOL [Concomitant]
  3. SYNTHROID [Concomitant]
  4. FOSAMAX [Concomitant]
  5. MAVIK [Concomitant]
  6. LEXAPRO [Concomitant]

REACTIONS (1)
  - PARAESTHESIA [None]
